FAERS Safety Report 15601275 (Version 1)
Quarter: 2018Q4

REPORT INFORMATION
  Report Type: Report from Study
  Country: CO (occurrence: CO)
  Receive Date: 20181109
  Receipt Date: 20181109
  Transmission Date: 20190205
  Serious: Yes (Other)
  Sender: FDA-Public Use
  Company Number: PHHY2018CO148969

PATIENT
  Sex: Female
  Weight: 64 kg

DRUGS (1)
  1. TASIGNA [Suspect]
     Active Substance: NILOTINIB
     Indication: CHRONIC MYELOID LEUKAEMIA
     Dosage: 300 MG,BID (EVERY 12 HOURS)
     Route: 048
     Dates: start: 20181009

REACTIONS (9)
  - Spinal pain [Unknown]
  - Somnolence [Unknown]
  - Bone pain [Unknown]
  - Gait disturbance [Unknown]
  - Paraesthesia [Unknown]
  - Secretion discharge [Unknown]
  - Pseudomonas infection [Unknown]
  - Burning sensation [Unknown]
  - Dysgeusia [Unknown]
